FAERS Safety Report 5873175-5 (Version None)
Quarter: 2008Q3

REPORT INFORMATION
  Report Type: 
  Country: None (occurrence: None)
  Receive Date: 20080908
  Receipt Date: 20080827
  Transmission Date: 20090109
  Serious: Yes (Hospitalization)
  Sender: FDA-Public Use
  Company Number: PT-JNJFOC-20080806674

PATIENT
  Sex: Female
  Weight: 65 kg

DRUGS (14)
  1. IBUPROFEN [Suspect]
     Indication: CELLULITIS
     Route: 048
  2. CLINDAMYCIN HCL [Suspect]
     Indication: CELLULITIS
     Route: 048
  3. LEVOTHYROXINE SODIUM [Concomitant]
     Indication: HYPOTHYROIDISM
     Route: 048
  4. FLAVONOIDS [Concomitant]
     Indication: VENOUS INSUFFICIENCY
     Route: 048
  5. CYAMEMAZINE TARTRATE [Concomitant]
     Indication: DEPRESSION
     Route: 048
  6. VENLAFAXINE HYDROCHLORIDE [Concomitant]
     Indication: DEPRESSION
     Route: 048
  7. ALPRAZOLAM [Concomitant]
     Indication: DEPRESSION
     Route: 048
  8. DEFLAZACORT [Concomitant]
     Indication: SJOGREN'S SYNDROME
     Route: 048
  9. DIPOTASSIUM CLORAZEPATE [Concomitant]
     Indication: DEPRESSION
     Route: 048
  10. PENTOXIFYLLINE [Concomitant]
     Route: 048
  11. NAPROXEN [Concomitant]
     Indication: PAIN
     Route: 048
  12. PREGABALIN [Concomitant]
     Indication: PAIN
     Route: 048
  13. CALCIUM CARBONATE [Concomitant]
     Indication: OSTEOPOROSIS PROPHYLAXIS
     Route: 048
  14. LANSOPRAZOLE [Concomitant]
     Indication: PROPHYLAXIS
     Route: 048

REACTIONS (6)
  - ALANINE AMINOTRANSFERASE INCREASED [None]
  - ASPARTATE AMINOTRANSFERASE INCREASED [None]
  - BLOOD LACTATE DEHYDROGENASE INCREASED [None]
  - EOSINOPHILIA [None]
  - PYREXIA [None]
  - RASH [None]
